FAERS Safety Report 14204573 (Version 1)
Quarter: 2017Q4

REPORT INFORMATION
  Report Type: Spontaneous
  Country: US (occurrence: None)
  Receive Date: 20171117
  Receipt Date: 20171117
  Transmission Date: 20180321
  Serious: Yes (Hospitalization)
  Sender: FDA-Public Use
  Company Number: None

PATIENT
  Age: 74 Year
  Sex: Male

DRUGS (1)
  1. AMOXICILLIN/CLAVULANATE [Suspect]
     Active Substance: AMOXICILLIN\CLAVULANATE POTASSIUM
     Dates: start: 20150415, end: 20150503

REACTIONS (6)
  - Drug-induced liver injury [None]
  - Decreased appetite [None]
  - Blood bilirubin increased [None]
  - Hepatitis [None]
  - Pruritus [None]
  - Liver function test increased [None]

NARRATIVE: CASE EVENT DATE: 20150604
